FAERS Safety Report 4736678-2 (Version None)
Quarter: 2005Q3

REPORT INFORMATION
  Report Type: 
  Country: None (occurrence: None)
  Receive Date: 20050808
  Receipt Date: 20050808
  Transmission Date: 20060218
  Serious: Yes (Other)
  Sender: FDA-Public Use
  Company Number: None

PATIENT
  Age: 18 Year
  Sex: Male
  Weight: 65.3 kg

DRUGS (5)
  1. REMICADE [Suspect]
     Indication: CROHN'S DISEASE
     Dosage: 300 MG IV 3 DOSE INDUCTION
     Route: 042
     Dates: start: 20050610
  2. REMICADE [Suspect]
     Indication: CROHN'S DISEASE
     Dosage: 300 MG IV 3 DOSE INDUCTION
     Route: 042
     Dates: start: 20050624
  3. MERCAPTOPURINE [Suspect]
     Indication: CROHN'S DISEASE
     Dosage: 100 MG PO QD
     Route: 048
     Dates: start: 20041201
  4. ASACOL [Concomitant]
  5. FLAGYL [Concomitant]

REACTIONS (4)
  - ABSCESS DRAINAGE [None]
  - FURUNCLE [None]
  - PURULENCE [None]
  - SUBCUTANEOUS ABSCESS [None]
